FAERS Safety Report 4278369-0 (Version None)
Quarter: 2004Q1

REPORT INFORMATION
  Report Type: 
  Country: None (occurrence: None)
  Receive Date: 20040123
  Receipt Date: 20040113
  Transmission Date: 20041129
  Serious: Yes (Death)
  Sender: FDA-Public Use
  Company Number: FR-ROCHE-355924

PATIENT
  Age: 18 Year
  Sex: Male

DRUGS (2)
  1. ROACCUTANE [Suspect]
     Indication: DRUG USE FOR UNKNOWN INDICATION
     Route: 065
     Dates: start: 20030315, end: 20030815
  2. ROACCUTANE [Suspect]
     Dosage: REPORTED THAT THERAPY STARTED IN 2000 OR 2001.
     Route: 065
     Dates: start: 20010615

REACTIONS (3)
  - COMPLETED SUICIDE [None]
  - DEPRESSION [None]
  - EATING DISORDER [None]
